FAERS Safety Report 8810635 (Version 5)
Quarter: 2012Q4

REPORT INFORMATION
  Report Type: 
  Country: BE (occurrence: BE)
  Receive Date: 20120927
  Receipt Date: 20121127
  Transmission Date: 20130627
  Serious: Yes (Other)
  Sender: FDA-Public Use
  Company Number: BE-AMGEN-BELSP2012060296

PATIENT
  Age: 76 Year
  Sex: Female

DRUGS (6)
  1. NPLATE [Suspect]
     Indication: IDIOPATHIC THROMBOCYTOPENIC PURPURA
     Dosage: 0.48 ml, qwk
     Route: 058
     Dates: start: 2012
  2. L-THYROXINE                        /00068001/ [Concomitant]
  3. EMCONCOR [Concomitant]
  4. LISINOPRIL [Concomitant]
  5. CALCIUM [Concomitant]
  6. VITAMIN D /00107901/ [Concomitant]
     Dosage: UNK UNK, qmo

REACTIONS (5)
  - Platelet count decreased [Unknown]
  - Viral infection [Unknown]
  - Platelet count increased [Unknown]
  - Nasopharyngitis [Unknown]
  - Insomnia [Unknown]
